FAERS Safety Report 11174352 (Version 1)
Quarter: 2015Q2

REPORT INFORMATION
  Report Type: Spontaneous
  Country: US (occurrence: None)
  Receive Date: 20150608
  Receipt Date: 20150608
  Transmission Date: 20150821
  Serious: Yes (Hospitalization)
  Sender: FDA-Public Use
  Company Number: None

PATIENT
  Age: 68 Year
  Sex: Female

DRUGS (8)
  1. GLATIRAMER (COPAXONE) [Concomitant]
  2. LIORESAL [Concomitant]
     Active Substance: BACLOFEN
  3. AMPYRA [Suspect]
     Active Substance: DALFAMPRIDINE
     Indication: MULTIPLE SCLEROSIS
     Route: 048
     Dates: start: 201005
  4. LOVENOX [Concomitant]
     Active Substance: ENOXAPARIN SODIUM
  5. OXYCODOE-ACETAMINOPHEN (PERCOCETIENDOCET) [Concomitant]
  6. ZOFRAN [Concomitant]
     Active Substance: ONDANSETRON HYDROCHLORIDE
  7. SENNOSIDES (SENOKOT) [Concomitant]
  8. FERROUS SULFATE (IRON) [Concomitant]

REACTIONS (3)
  - Arthralgia [None]
  - Femoral neck fracture [None]
  - Fall [None]

NARRATIVE: CASE EVENT DATE: 20150508
